FAERS Safety Report 7854757-8 (Version None)
Quarter: 2011Q4

REPORT INFORMATION
  Report Type: 
  Country: None (occurrence: None)
  Receive Date: 20111026
  Receipt Date: 20110913
  Transmission Date: 20120403
  Serious: No
  Sender: FDA-Public Use
  Company Number: US-MUTUAL PHARMACEUTICAL COMPANY, INC.-CLCY20110127

PATIENT
  Sex: Male
  Weight: 70.37 kg

DRUGS (6)
  1. PREDNISONE [Suspect]
     Indication: GOUT
     Route: 048
     Dates: start: 20110905, end: 20110915
  2. ZOLPIDEM [Concomitant]
     Indication: INSOMNIA
     Route: 048
     Dates: start: 20100101
  3. COLCRYS [Suspect]
     Indication: GOUT
     Route: 048
     Dates: start: 20110912
  4. TOPROL-XL [Concomitant]
     Indication: HYPERTENSION
     Route: 048
  5. ALLOPURINOL [Concomitant]
     Indication: GOUT
     Route: 048
     Dates: start: 20110701
  6. DIOVAN [Concomitant]
     Indication: HYPERTENSION
     Route: 048

REACTIONS (4)
  - DIARRHOEA [None]
  - DRY MOUTH [None]
  - INSOMNIA [None]
  - ABDOMINAL DISCOMFORT [None]
